FAERS Safety Report 7215600-3 (Version None)
Quarter: 2011Q1

REPORT INFORMATION
  Report Type: 
  Country: None (occurrence: None)
  Receive Date: 20110107
  Receipt Date: 20101229
  Transmission Date: 20110831
  Serious: Yes (Other)
  Sender: FDA-Public Use
  Company Number: US-PURDUE-USA-2010-0042629

PATIENT
  Sex: Male

DRUGS (9)
  1. OXYCONTIN [Suspect]
     Indication: ARTHRALGIA
     Dosage: 240 UNK, UNK
  2. OXYCODONE HCL [Suspect]
     Indication: PAIN
     Dosage: 10 MG, UNK
  3. METHADONE [Concomitant]
  4. LUNESTA [Concomitant]
  5. OXYCONTIN [Suspect]
     Indication: BACK PAIN
     Dosage: 400 MG, DAILY
  6. OXYCONTIN [Suspect]
     Indication: PAIN
  7. CYCLOBENZAPRINE [Concomitant]
  8. DEMEROL [Suspect]
     Indication: PRODUCT USED FOR UNKNOWN INDICATION
     Dosage: 50 MG, UNK
  9. LYRICA [Concomitant]

REACTIONS (27)
  - INADEQUATE ANALGESIA [None]
  - DRUG WITHDRAWAL SYNDROME [None]
  - VOMITING [None]
  - INTENTIONAL DRUG MISUSE [None]
  - ORAL INFECTION [None]
  - AFFECTIVE DISORDER [None]
  - SUICIDAL IDEATION [None]
  - GENERAL PHYSICAL HEALTH DETERIORATION [None]
  - VISION BLURRED [None]
  - NERVOUSNESS [None]
  - UNEVALUABLE EVENT [None]
  - PYREXIA [None]
  - TOOTH LOSS [None]
  - CONFUSIONAL STATE [None]
  - PARANOIA [None]
  - NERVOUS SYSTEM DISORDER [None]
  - DENTAL CARIES [None]
  - DISTURBANCE IN ATTENTION [None]
  - LIBIDO DECREASED [None]
  - MUSCLE TWITCHING [None]
  - DRUG DEPENDENCE [None]
  - MEMORY IMPAIRMENT [None]
  - DRUG INEFFECTIVE [None]
  - HYPERHIDROSIS [None]
  - CONSTIPATION [None]
  - DYSKINESIA [None]
  - MENTAL IMPAIRMENT [None]
